FAERS Safety Report 19388948 (Version 1)
Quarter: 2021Q2

REPORT INFORMATION
  Report Type: Spontaneous
  Country: US (occurrence: US)
  Receive Date: 20210607
  Receipt Date: 20210607
  Transmission Date: 20210717
  Serious: No
  Sender: FDA-Public Use
  Company Number: US-SA-2021SA188789

PATIENT
  Sex: Female
  Weight: 77.1 kg

DRUGS (4)
  1. COVID?19 VACCINE [Concomitant]
     Dosage: UNK
     Dates: start: 20210106
  2. DUPIXENT [Suspect]
     Active Substance: DUPILUMAB
     Indication: ASTHMA
     Dosage: 200 MG, QOW
     Route: 058
  3. JANUVIA [Concomitant]
     Active Substance: SITAGLIPTIN PHOSPHATE
  4. CELEBREX [Concomitant]
     Active Substance: CELECOXIB

REACTIONS (5)
  - Nausea [Unknown]
  - SARS-CoV-2 test positive [Unknown]
  - Rash erythematous [Unknown]
  - COVID-19 [Unknown]
  - Rash [Unknown]

NARRATIVE: CASE EVENT DATE: 202011
